FAERS Safety Report 9059285 (Version 2)
Quarter: 2013Q1

REPORT INFORMATION
  Report Type: Report from Study
  Country: DE (occurrence: DE)
  Receive Date: 20130211
  Receipt Date: 20130327
  Transmission Date: 20140127
  Serious: No
  Sender: FDA-Public Use
  Company Number: DE-ROCHE-1188462

PATIENT
  Age: 52 Year
  Sex: Male
  Weight: 85 kg

DRUGS (6)
  1. PEG-INTERFERON ALFA 2A [Suspect]
     Indication: HEPATITIS C
     Route: 058
     Dates: start: 20120420, end: 20120831
  2. PEG-INTERFERON ALFA 2A [Suspect]
     Indication: THROMBOCYTOPENIA
     Route: 058
     Dates: start: 20120907
  3. RIBAVIRIN [Suspect]
     Indication: HEPATITIS C
     Route: 048
     Dates: start: 20120419
  4. RIBAVIRIN [Suspect]
     Indication: THROMBOCYTOPENIA
  5. PARACETAMOL [Concomitant]
     Route: 048
     Dates: start: 20120427
  6. DOCITON [Concomitant]
     Indication: VARICES OESOPHAGEAL
     Route: 048
     Dates: start: 201107

REACTIONS (1)
  - Leukopenia [Recovered/Resolved]
